FAERS Safety Report 17582199 (Version 2)
Quarter: 2021Q1

REPORT INFORMATION
  Report Type: Spontaneous
  Country: JP (occurrence: JP)
  Receive Date: 20200325
  Receipt Date: 20210127
  Transmission Date: 20210419
  Serious: Yes (Hospitalization)
  Sender: FDA-Public Use
  Company Number: JP-EISAI MEDICAL RESEARCH-EC-2020-071949

PATIENT
  Age: 54 Year
  Sex: Female

DRUGS (3)
  1. PARIET [Suspect]
     Active Substance: RABEPRAZOLE SODIUM
     Indication: BEHCET^S SYNDROME
     Route: 048
  2. LOPERAMIDE [Concomitant]
     Active Substance: LOPERAMIDE
     Indication: PRODUCT USED FOR UNKNOWN INDICATION
     Route: 048
  3. COLCHICINE. [Concomitant]
     Active Substance: COLCHICINE
     Indication: PRODUCT USED FOR UNKNOWN INDICATION
     Route: 048

REACTIONS (2)
  - Hypocalcaemia [Recovering/Resolving]
  - Hypomagnesaemia [Recovering/Resolving]

NARRATIVE: CASE EVENT DATE: 201905
